FAERS Safety Report 9301750 (Version 3)
Quarter: 2013Q3

REPORT INFORMATION
  Report Type: Spontaneous
  Country: US (occurrence: US)
  Receive Date: 20130521
  Receipt Date: 20130912
  Transmission Date: 20140515
  Serious: Yes (Other)
  Sender: FDA-Public Use
  Company Number: US-INCYTE CORPORATION-2013IN000991

PATIENT
  Age: 67 Year
  Sex: Female
  Weight: 73.93 kg

DRUGS (12)
  1. JAKAFI [Suspect]
     Indication: MYELOFIBROSIS
     Dosage: 20 MG, BID
     Route: 048
     Dates: start: 20120927, end: 20130806
  2. HYDREA [Concomitant]
     Dosage: 500 MG, QD
     Route: 048
     Dates: start: 20120621
  3. HYDREA [Concomitant]
     Dosage: 500 MG, BID
     Route: 048
     Dates: start: 20120702
  4. DITROPAN [Concomitant]
     Dosage: 1 DF, BID
     Route: 048
  5. NORCO [Concomitant]
     Dosage: 1 TABLET EVERY 6 HOUS AS NEEDED
     Route: 048
  6. PROVENTIL/VENTOLIN [Concomitant]
     Indication: WHEEZING
     Dosage: 2 PUFFS EVERY 4 HOURS AS NEEDED FOR WHEEZING
  7. PROZAC [Concomitant]
     Dosage: 1 TABLET EVERY 12 HOURS
     Route: 048
  8. ASPIRIN [Concomitant]
     Dosage: 325 MG, DAILY
     Route: 048
  9. ZYLOPRIM [Concomitant]
     Dosage: 300 MG, DAILY
     Route: 048
  10. TYLENOL [Concomitant]
     Dosage: 650 MG, EVERY 8 HOURS AS NEEDED
     Route: 048
  11. MULTIVITAMIN AND MINERAL (ADERS) [Concomitant]
     Dosage: 1 TABLET, DAILY
     Route: 048
  12. PRILOSEC OTC [Concomitant]
     Dosage: UNK
     Route: 048

REACTIONS (6)
  - Transplant [Unknown]
  - Splenectomy [Unknown]
  - Haemoglobin decreased [Unknown]
  - Haematocrit decreased [Unknown]
  - Platelet count increased [Unknown]
  - Tooth extraction [Unknown]
